FAERS Safety Report 8341472-X (Version None)
Quarter: 2012Q2

REPORT INFORMATION
  Report Type: 
  Country: None (occurrence: None)
  Receive Date: 20120507
  Receipt Date: 20100107
  Transmission Date: 20120825
  Serious: No
  Sender: FDA-Public Use
  Company Number: US-TEVA-2010000110

PATIENT
  Sex: Female
  Weight: 52.21 kg

DRUGS (5)
  1. PREDNISONE EYE DROP [Concomitant]
     Indication: CATARACT
  2. NEVANAC EYE DROP [Concomitant]
     Indication: CATARACT
  3. HYZAAR [Concomitant]
     Indication: HYPERTENSION
     Dosage: 100 MILLIGRAM;
  4. VYTORIN [Concomitant]
     Indication: BLOOD CHOLESTEROL INCREASED
  5. TREANDA [Suspect]

REACTIONS (3)
  - PRODUCT TASTE ABNORMAL [None]
  - EYE SWELLING [None]
  - ACCIDENTAL EXPOSURE [None]
